FAERS Safety Report 23287260 (Version 1)
Quarter: 2023Q4

REPORT INFORMATION
  Report Type: Spontaneous
  Country: ES (occurrence: None)
  Receive Date: 20231210
  Receipt Date: 20231210
  Transmission Date: 20240110
  Serious: Yes (Life-Threatening, Disabling)
  Sender: FDA-Public Use
  Company Number: None

PATIENT
  Age: 35 Year
  Sex: Female
  Weight: 38 kg

DRUGS (34)
  1. CIPROFLOXACIN [Suspect]
     Active Substance: CIPROFLOXACIN
     Indication: Urinary tract infection
     Dosage: OTHER QUANTITY : 30 CAPSULE(S);?FREQUENCY : EVERY 8 HOURS;?
     Route: 048
     Dates: start: 20160606, end: 20160616
  2. IBUPROFEN [Suspect]
     Active Substance: IBUPROFEN
  3. Red light therapy [Concomitant]
  4. pacing [Concomitant]
  5. alternative pain treatments [Concomitant]
  6. physiotherapy [Concomitant]
  7. cane [Concomitant]
  8. wheel chair [Concomitant]
  9. vitamins: c, d, K2, e [Concomitant]
  10. CYANOCOBALAMIN\DEXPANTHENOL\NIACINAMIDE\PYRIDOXINE HYDROCHLORIDE\RIBOF [Concomitant]
     Active Substance: CYANOCOBALAMIN\DEXPANTHENOL\NIACINAMIDE\PYRIDOXINE HYDROCHLORIDE\RIBOFLAVIN 5^-PHOSPHATE SODIUM\THIA
  11. PQQ [Concomitant]
  12. UBIQUINOL [Concomitant]
  13. MAGNESIUM [Concomitant]
  14. POTASSIUM [Concomitant]
  15. CANNABIDIOL [Concomitant]
     Active Substance: CANNABIDIOL
  16. CURCUMIN [Concomitant]
  17. jinger extract [Concomitant]
  18. BUTYRIC ACID [Concomitant]
     Active Substance: BUTYRIC ACID
  19. PROBIOTICS NOS [Concomitant]
     Active Substance: PROBIOTICS NOS
  20. PEA [Concomitant]
     Active Substance: PEA
  21. ashwaghanda [Concomitant]
  22. TAURINE [Concomitant]
     Active Substance: TAURINE
  23. COLLAGEN [Concomitant]
     Active Substance: COLLAGEN
  24. NAC [Concomitant]
  25. IODINE [Concomitant]
  26. zinc I carnosine [Concomitant]
  27. MELATONIN [Concomitant]
  28. CREATINE [Concomitant]
  29. SERRAPEPTASE [Concomitant]
     Active Substance: SERRAPEPTASE
  30. URIDINE MONOPHOSPHATE [Concomitant]
     Active Substance: URIDINE MONOPHOSPHATE
  31. d phenylalanine [Concomitant]
  32. cramp bark extract [Concomitant]
  33. WHITE WILLOW [Concomitant]
     Active Substance: WHITE WILLOW
  34. franckincense oil [Concomitant]

REACTIONS (11)
  - Seizure [None]
  - Fatigue [None]
  - Anxiety [None]
  - Confusional state [None]
  - Tendon pain [None]
  - Autonomic nervous system imbalance [None]
  - Idiopathic environmental intolerance [None]
  - Neuralgia [None]
  - Nervous system disorder [None]
  - Postural orthostatic tachycardia syndrome [None]
  - Disability [None]

NARRATIVE: CASE EVENT DATE: 20160613
